FAERS Safety Report 17691775 (Version 1)
Quarter: 2020Q2

REPORT INFORMATION
  Report Type: Spontaneous
  Country: IT (occurrence: IT)
  Receive Date: 20200422
  Receipt Date: 20200422
  Transmission Date: 20200714
  Serious: Yes (Death)
  Sender: FDA-Public Use
  Company Number: IT-TEVA-2020-IT-1225466

PATIENT
  Age: 50 Year
  Sex: Male

DRUGS (12)
  1. MOXIFLOXACINA [Suspect]
     Active Substance: MOXIFLOXACIN HYDROCHLORIDE
     Indication: COUGH
  2. CORTISONE [Suspect]
     Active Substance: CORTISONE
     Indication: COUGH
  3. INTERFERONE ALFA-2A PEGILATO [Suspect]
     Active Substance: PEGINTERFERON ALFA-2A
     Indication: DYSPNOEA
  4. MOXIFLOXACINA [Suspect]
     Active Substance: MOXIFLOXACIN HYDROCHLORIDE
     Indication: CORONAVIRUS INFECTION
     Route: 065
  5. MOXIFLOXACINA [Suspect]
     Active Substance: MOXIFLOXACIN HYDROCHLORIDE
     Indication: FATIGUE
  6. MOXIFLOXACINA [Suspect]
     Active Substance: MOXIFLOXACIN HYDROCHLORIDE
     Indication: DYSPNOEA
  7. INTERFERONE ALFA-2A PEGILATO [Suspect]
     Active Substance: PEGINTERFERON ALFA-2A
     Indication: FATIGUE
  8. CORTISONE [Suspect]
     Active Substance: CORTISONE
     Indication: DYSPNOEA
  9. CORTISONE [Suspect]
     Active Substance: CORTISONE
     Indication: CORONAVIRUS INFECTION
  10. CORTISONE [Suspect]
     Active Substance: CORTISONE
     Indication: FATIGUE
  11. INTERFERONE ALFA-2A PEGILATO [Suspect]
     Active Substance: PEGINTERFERON ALFA-2A
     Indication: CORONAVIRUS INFECTION
     Route: 065
  12. INTERFERONE ALFA-2A PEGILATO [Suspect]
     Active Substance: PEGINTERFERON ALFA-2A
     Indication: COUGH

REACTIONS (1)
  - Immune system disorder [Fatal]
